FAERS Safety Report 21823198 (Version 1)
Quarter: 2023Q1

REPORT INFORMATION
  Report Type: Spontaneous
  Country: US (occurrence: US)
  Receive Date: 20230105
  Receipt Date: 20230105
  Transmission Date: 20230418
  Serious: No
  Sender: FDA-Public Use
  Company Number: US-LANNETT COMPANY, INC.-US-2022LAN000122

PATIENT

DRUGS (1)
  1. TRIAMTERENE AND HYDROCHLOROTHIAZIDE [Interacting]
     Active Substance: HYDROCHLOROTHIAZIDE\TRIAMTERENE
     Indication: Hypertension
     Dosage: 37.5 MG
     Route: 065

REACTIONS (3)
  - Malaise [Recovering/Resolving]
  - Blood pressure increased [Unknown]
  - Dizziness [Recovering/Resolving]
